FAERS Safety Report 5217801-2 (Version None)
Quarter: 2007Q1

REPORT INFORMATION
  Report Type: 
  Country: None (occurrence: None)
  Receive Date: 20061130
  Receipt Date: 20060720
  Transmission Date: 20070707
  Serious: Yes (Hospitalization)
  Sender: FDA-Public Use
  Company Number: US200607003710

PATIENT
  Sex: Male
  Weight: 95.2 kg

DRUGS (1)
  1. ZYPREXA [Suspect]
     Dosage: 200 MG, UNK, UNK
     Dates: start: 20040101

REACTIONS (2)
  - DIABETES MELLITUS [None]
  - PRESCRIBED OVERDOSE [None]
